FAERS Safety Report 10899543 (Version 1)
Quarter: 2015Q1

REPORT INFORMATION
  Report Type: Spontaneous
  Country: FR (occurrence: FR)
  Receive Date: 20150309
  Receipt Date: 20150309
  Transmission Date: 20150721
  Serious: Yes (Life-Threatening, Hospitalization)
  Sender: FDA-Public Use
  Company Number: FR-PFIZER INC-2015079960

PATIENT
  Age: 26 Year
  Sex: Male

DRUGS (5)
  1. IXPRIM [Suspect]
     Active Substance: ACETAMINOPHEN\TRAMADOL HYDROCHLORIDE
     Dosage: AROUND 20 TABLETS
     Route: 048
     Dates: start: 20150125, end: 20150125
  2. XANAX [Suspect]
     Active Substance: ALPRAZOLAM
     Dosage: AROUND 30 TABLETS 0.5 MG
     Route: 048
     Dates: start: 20150125, end: 20150125
  3. XANAX [Suspect]
     Active Substance: ALPRAZOLAM
     Dosage: UNK
     Route: 048
     Dates: start: 2014, end: 201501
  4. ZOPICLONE [Suspect]
     Active Substance: ZOPICLONE
     Dosage: UNK
     Dates: start: 2014, end: 2015
  5. CURACNE [Suspect]
     Active Substance: ISOTRETINOIN
     Dosage: 5 MG, DAILY
     Route: 048
     Dates: start: 2011, end: 2015

REACTIONS (5)
  - Road traffic accident [Unknown]
  - Back pain [Unknown]
  - Overdose [Unknown]
  - Suicide attempt [Recovered/Resolved]
  - Hepatocellular injury [Recovered/Resolved]

NARRATIVE: CASE EVENT DATE: 20150125
